FAERS Safety Report 22827481 (Version 2)
Quarter: 2023Q4

REPORT INFORMATION
  Report Type: Spontaneous
  Country: US (occurrence: US)
  Receive Date: 20230816
  Receipt Date: 20231018
  Transmission Date: 20240109
  Serious: Yes (Hospitalization)
  Sender: FDA-Public Use
  Company Number: US-SMITH AND NEPHEW, INC-2023SMT00061

PATIENT
  Age: 66 Year
  Sex: Female

DRUGS (10)
  1. COLLAGENASE SANTYL [Suspect]
     Active Substance: COLLAGENASE CLOSTRIDIUM HISTOLYTICUM
     Indication: Wound
     Dosage: APPLIED TO ALGINATE CLOTH AND PLACE ON WOUND ON LEFT INNER CALF 1X/DAY (UP TO 1/2 TUBE AT A TIME)
     Dates: start: 202305
  2. UNSPECIFIED INGREDIENT [Suspect]
     Active Substance: UNSPECIFIED INGREDIENT
     Dosage: UNK
     Dates: end: 2023
  3. LISINOPRIL [Concomitant]
     Active Substance: LISINOPRIL
  4. ATORVASTATIN [Concomitant]
     Active Substance: ATORVASTATIN
  5. ELIQUIS [Concomitant]
     Active Substance: APIXABAN
  6. GABAPENTIN [Concomitant]
     Active Substance: GABAPENTIN
  7. DULOXETINE [Concomitant]
     Active Substance: DULOXETINE
  8. AMITRIPTYLINE [Concomitant]
     Active Substance: AMITRIPTYLINE
  9. ROPINIROLE [Concomitant]
     Active Substance: ROPINIROLE
  10. OXYBUTYNIN [Concomitant]
     Active Substance: OXYBUTYNIN

REACTIONS (2)
  - Blood potassium increased [Recovered/Resolved]
  - Coagulation time shortened [Recovered/Resolved]

NARRATIVE: CASE EVENT DATE: 20230826
